FAERS Safety Report 26040633 (Version 1)
Quarter: 2025Q4

REPORT INFORMATION
  Report Type: Spontaneous
  Country: EU (occurrence: EU)
  Receive Date: 20251113
  Receipt Date: 20251113
  Transmission Date: 20260118
  Serious: Yes (Life-Threatening, Hospitalization)
  Sender: TEVA
  Company Number: None

PATIENT
  Age: 85 Year
  Sex: Male

DRUGS (6)
  1. METFORMIN [Suspect]
     Active Substance: METFORMIN HYDROCHLORIDE
     Indication: Product used for unknown indication
     Route: 065
  2. INDAPAMIDE [Suspect]
     Active Substance: INDAPAMIDE
     Indication: Product used for unknown indication
     Dosage: PROLONGED-RELEASE COATED TABLETS
     Route: 065
     Dates: end: 20220311
  3. TAMSULOSIN HYDROCHLORIDE [Concomitant]
     Active Substance: TAMSULOSIN HYDROCHLORIDE
     Indication: Product used for unknown indication
     Dosage: 0.4 0.4 MG, PROLONGED-RELEASE COATED TABLETS
  4. BISOPROLOL FUMARATE [Concomitant]
     Active Substance: BISOPROLOL FUMARATE
     Indication: Product used for unknown indication
  5. FINASTER [Concomitant]
     Indication: Product used for unknown indication
  6. CANDESARTAN CILEXETIL [Suspect]
     Active Substance: CANDESARTAN CILEXETIL
     Indication: Product used for unknown indication
     Dosage: DOSE: 1 UNIT UNKNOWN
     Route: 065
     Dates: end: 20220311

REACTIONS (3)
  - Renal impairment [Unknown]
  - Urosepsis [Unknown]
  - Confusional state [Unknown]

NARRATIVE: CASE EVENT DATE: 20220301
